FAERS Safety Report 9028015 (Version 2)
Quarter: 2013Q1

REPORT INFORMATION
  Report Type: Spontaneous
  Country: US (occurrence: None)
  Receive Date: 20130104
  Receipt Date: 20130124
  Transmission Date: 20140127
  Serious: Yes (Death, Hospitalization)
  Sender: FDA-Public Use
  Company Number: 2012-1184

PATIENT
  Age: 57 Year
  Sex: Male

DRUGS (1)
  1. KYPROLIS [Suspect]
     Indication: PLASMA CELL MYELOMA
     Dosage: (34 MG, 2 IN 1 WK)
     Route: 042
     Dates: start: 20120924, end: 20121004

REACTIONS (2)
  - Convulsion [None]
  - Plasma cell myeloma [None]
